FAERS Safety Report 18875796 (Version 1)
Quarter: 2021Q1

REPORT INFORMATION
  Report Type: Spontaneous
  Country: US (occurrence: US)
  Receive Date: 20210210
  Receipt Date: 20210210
  Transmission Date: 20210420
  Serious: Yes (Life-Threatening)
  Sender: FDA-Public Use
  Company Number: US-THE PROACTIV LLC-2106590

PATIENT
  Age: 17 Year
  Sex: Female

DRUGS (6)
  1. PROACTIV MD DAILY OIL CONTROL SPF 30 [Concomitant]
     Active Substance: AVOBENZONE\OCTISALATE\OCTOCRYLENE
     Route: 061
     Dates: start: 202001, end: 202002
  2. PROACTIV SOLUTION DEEP CLEANSING WASH [Suspect]
     Active Substance: SALICYLIC ACID
     Route: 061
     Dates: start: 202001, end: 202002
  3. REDNESS RELIEF SERUM?COSMETIC [Concomitant]
     Route: 061
     Dates: start: 202001, end: 202002
  4. PROACTIV MD DEEP CLEANSING FACE WASH?COSMETIC [Concomitant]
     Route: 061
     Dates: start: 202001, end: 202002
  5. PROACTIV MD ADAPALENE ACNE TREATMENT [Concomitant]
     Active Substance: ADAPALENE
     Route: 061
     Dates: start: 202001, end: 202002
  6. PROACTIV GREEN TEA MOISTURIZER?COSMETIC [Concomitant]
     Route: 061
     Dates: start: 202001, end: 202002

REACTIONS (6)
  - Pruritus [Recovered/Resolved]
  - Anaphylactic reaction [Recovered/Resolved]
  - Lip swelling [Recovered/Resolved]
  - Blister [Recovered/Resolved]
  - Hypoaesthesia [Recovered/Resolved]
  - Wheezing [Recovered/Resolved]
